FAERS Safety Report 4560013-6 (Version None)
Quarter: 2005Q1

REPORT INFORMATION
  Report Type: 
  Country: None (occurrence: None)
  Receive Date: 20050124
  Receipt Date: 20050103
  Transmission Date: 20050727
  Serious: Yes (Hospitalization, Other)
  Sender: FDA-Public Use
  Company Number: 2005S1000044

PATIENT
  Age: 17 Year
  Sex: Female

DRUGS (3)
  1. FLUVOXAMINE MALEATE TABLETS 50 MG [Suspect]
     Indication: OBSESSIVE-COMPULSIVE DISORDER
     Dosage: 50 MG BID ORAL
     Route: 048
     Dates: start: 20030223, end: 20030224
  2. PAROXETINE CR [Concomitant]
  3. MIRTAZAPINE [Concomitant]

REACTIONS (3)
  - DEHYDRATION [None]
  - DRUG HYPERSENSITIVITY [None]
  - SEROTONIN SYNDROME [None]
